FAERS Safety Report 9722662 (Version 2)
Quarter: 2014Q1

REPORT INFORMATION
  Report Type: Spontaneous
  Country: US (occurrence: US)
  Receive Date: 20131202
  Receipt Date: 20140217
  Transmission Date: 20141002
  Serious: Yes (Other)
  Sender: FDA-Public Use
  Company Number: US-PFIZER INC-2013338969

PATIENT
  Sex: Female

DRUGS (3)
  1. FLAGYL [Suspect]
     Dosage: UNK
     Route: 048
     Dates: start: 2011
  2. COMPAZINE [Suspect]
     Dosage: UNK
     Route: 048
  3. AUGMENTIN [Suspect]
     Dosage: UNK
     Route: 048

REACTIONS (4)
  - Anaphylactic reaction [Unknown]
  - Drug hypersensitivity [Unknown]
  - Rash [Unknown]
  - Vomiting [Unknown]
